FAERS Safety Report 4313017-2 (Version None)
Quarter: 2004Q1

REPORT INFORMATION
  Report Type: 
  Country: None (occurrence: None)
  Receive Date: 20040308
  Receipt Date: 20040225
  Transmission Date: 20041129
  Serious: Yes (Hospitalization)
  Sender: FDA-Public Use
  Company Number: US-BRISTOL-MYERS SQUIBB COMPANY-12524385

PATIENT
  Age: 33 Year
  Sex: Female

DRUGS (17)
  1. SERZONE [Suspect]
     Dates: start: 20010220, end: 20020216
  2. ZYPREXA [Concomitant]
  3. NECON [Concomitant]
  4. PRINIVIL [Concomitant]
  5. TOPAMAX [Concomitant]
     Indication: DEPRESSION
  6. PRILOSEC [Concomitant]
  7. ZITHROMAX [Concomitant]
  8. BENZONATATE [Concomitant]
  9. PREDNISONE [Concomitant]
  10. PHENERGAN VC [Concomitant]
  11. ALBUTEROL [Concomitant]
  12. INDOMETHACIN [Concomitant]
  13. ATIVAN [Concomitant]
     Indication: ANXIETY
  14. CELEXA [Concomitant]
  15. ORTHO TRI-CYCLEN [Concomitant]
  16. NYSTATIN + TRIAM ACE [Concomitant]
  17. FAMOTIDINE [Concomitant]

REACTIONS (9)
  - BILIARY TRACT DISORDER [None]
  - BILOMA [None]
  - CHOLECYSTITIS [None]
  - DEHYDRATION [None]
  - HEPATIC STEATOSIS [None]
  - HYPOKALAEMIA [None]
  - PANCREATITIS ACUTE [None]
  - PLEURAL EFFUSION [None]
  - PROTHROMBIN TIME PROLONGED [None]
